FAERS Safety Report 12900575 (Version 1)
Quarter: 2016Q4

REPORT INFORMATION
  Report Type: Spontaneous
  Country: US (occurrence: US)
  Receive Date: 20161031
  Receipt Date: 20161031
  Transmission Date: 20170207
  Serious: No
  Sender: FDA-Public Use
  Company Number: None

PATIENT
  Age: 25 Year
  Sex: Male

DRUGS (1)
  1. ILARIS [Suspect]
     Active Substance: CANAKINUMAB
     Indication: JUVENILE IDIOPATHIC ARTHRITIS
     Dosage: ILARIS 180MG Q 4 WKS SQ
     Route: 058
     Dates: start: 20160628, end: 20161031

REACTIONS (2)
  - Depression [None]
  - Hyperhidrosis [None]

NARRATIVE: CASE EVENT DATE: 20161031
